FAERS Safety Report 4631830-9 (Version None)
Quarter: 2005Q2

REPORT INFORMATION
  Report Type: 
  Country: None (occurrence: None)
  Receive Date: 20050411
  Receipt Date: 20050329
  Transmission Date: 20051028
  Serious: Yes (Hospitalization)
  Sender: FDA-Public Use
  Company Number: JP-JNJFOC-20050205433

PATIENT
  Sex: Male
  Weight: 51 kg

DRUGS (14)
  1. REMICADE [Suspect]
     Route: 042
  2. REMICADE [Suspect]
     Route: 042
  3. REMICADE [Suspect]
     Route: 042
  4. REMICADE [Suspect]
     Indication: RHEUMATOID ARTHRITIS
     Route: 042
  5. METOLATE [Suspect]
     Route: 049
  6. METOLATE [Suspect]
     Route: 049
  7. METOLATE [Suspect]
     Indication: RHEUMATOID ARTHRITIS
     Route: 049
  8. LANIRAPID [Concomitant]
     Route: 049
  9. LASIX [Concomitant]
     Route: 049
  10. TAMBOCOR [Concomitant]
     Route: 049
  11. GASTER D [Concomitant]
     Route: 049
  12. LOXONIN [Concomitant]
     Route: 049
  13. DASEN [Concomitant]
     Route: 049
  14. MEIACT [Concomitant]
     Route: 049

REACTIONS (3)
  - INFUSION RELATED REACTION [None]
  - PNEUMONIA [None]
  - TACHYCARDIA PAROXYSMAL [None]
